FAERS Safety Report 22530923 (Version 1)
Quarter: 2023Q2

REPORT INFORMATION
  Report Type: Report from Study
  Country: MX (occurrence: MX)
  Receive Date: 20230607
  Receipt Date: 20230607
  Transmission Date: 20230722
  Serious: Yes (Other)
  Sender: FDA-Public Use
  Company Number: MX-002147023-NVSC2023MX118206

PATIENT
  Age: 82 Year
  Sex: Male
  Weight: 74.5 kg

DRUGS (9)
  1. ELTROMBOPAG OLAMINE [Suspect]
     Active Substance: ELTROMBOPAG OLAMINE
     Indication: Platelet count decreased
     Dosage: 25 MG, QD (2 OF 25 MG)
     Route: 048
     Dates: start: 20230507
  2. ELTROMBOPAG OLAMINE [Suspect]
     Active Substance: ELTROMBOPAG OLAMINE
     Indication: Hepatic cirrhosis
  3. LEFLUNOMIDE [Concomitant]
     Active Substance: LEFLUNOMIDE
     Indication: Hypertension
     Dosage: 20 MG, Q24H (SEVERAL YEARS AGO, EXACT DATE UNKNOWN)
     Route: 048
  4. SULINDAC [Concomitant]
     Active Substance: SULINDAC
     Indication: Arthralgia
     Dosage: 200 MG, PRN (SEVERAL YEARS AGO, EXACT DATE UNKNOWN,1 X 200MG, WHEN NECESSARY)
     Route: 048
  5. FUROSEMIDE [Concomitant]
     Active Substance: FUROSEMIDE
     Indication: Polyuria
     Dosage: 40 MG, Q24H (SEVERAL YEARS AGO, EXACT DATE UNKNOWN,1 X 40MG)
     Route: 048
  6. HYDROCHLOROTHIAZIDE [Concomitant]
     Active Substance: HYDROCHLOROTHIAZIDE
     Indication: Hypertension
     Dosage: 25 MG, Q24H (SEVERAL YEARS AGO, EXACT DATE UNKNOWN, 1 X 25MG)
     Route: 048
  7. ENALAPRIL [Concomitant]
     Active Substance: ENALAPRIL
     Indication: Hypertension
     Dosage: 10 MG, Q12H (SEVERAL YEARS AGO, EXACT DATE UNKNOWN , 1 X 10MG)
     Route: 048
  8. PROPRANOLOL [Concomitant]
     Active Substance: PROPRANOLOL HYDROCHLORIDE
     Indication: Hypertension
     Dosage: 40 MG, Q24H (SEVERAL YEARS AGO, EXACT DATE UNKNOWN,1 X 40MG)
     Route: 048
  9. OMEPRAZOLE [Concomitant]
     Active Substance: OMEPRAZOLE
     Indication: Abdominal discomfort
     Dosage: 20 MG, Q24H (SEVERAL YEARS AGO, EXACT DATE UNKNOWN, 1 X 20MG)
     Route: 048

REACTIONS (3)
  - Platelet count decreased [Unknown]
  - Urinary tract obstruction [Not Recovered/Not Resolved]
  - Drug ineffective for unapproved indication [Unknown]

NARRATIVE: CASE EVENT DATE: 20230507
